FAERS Safety Report 7576453-7 (Version None)
Quarter: 2011Q2

REPORT INFORMATION
  Report Type: 
  Country: None (occurrence: None)
  Receive Date: 20110628
  Receipt Date: 20110624
  Transmission Date: 20111010
  Serious: Yes (Hospitalization)
  Sender: FDA-Public Use
  Company Number: US-AMGEN-USASP2011030635

PATIENT
  Age: 47 Year
  Sex: Male

DRUGS (17)
  1. EPLERENONE [Concomitant]
  2. TRUVADA [Concomitant]
  3. NEXIUM [Concomitant]
  4. MAGNESIUM OXIDE [Concomitant]
  5. THIAMINE                           /00056102/ [Concomitant]
  6. FOLIC ACID [Concomitant]
  7. PREZISTA                           /05513801/ [Concomitant]
  8. PRAVACHOL [Concomitant]
  9. DESYREL [Concomitant]
  10. PREVACID [Concomitant]
  11. NORVIR [Concomitant]
  12. FUROSEMIDE [Concomitant]
  13. ANDRODERM [Concomitant]
  14. MULTIPLE VITAMINS [Concomitant]
  15. BENADRYL [Concomitant]
  16. NPLATE [Suspect]
     Indication: IDIOPATHIC THROMBOCYTOPENIC PURPURA
     Dosage: 6 A?G/KG, UNK
     Route: 058
     Dates: start: 20110105
  17. VITAMIN D [Concomitant]

REACTIONS (9)
  - OEDEMA PERIPHERAL [None]
  - ROSACEA [None]
  - ABDOMINAL DISTENSION [None]
  - PETECHIAE [None]
  - HEPATITIS ALCOHOLIC [None]
  - GINGIVAL BLEEDING [None]
  - WITHDRAWAL SYNDROME [None]
  - EPISTAXIS [None]
  - DEPRESSION [None]
